FAERS Safety Report 22161651 (Version 1)
Quarter: 2023Q1

REPORT INFORMATION
  Report Type: Spontaneous
  Country: CH (occurrence: None)
  Receive Date: 20230331
  Receipt Date: 20230331
  Transmission Date: 20230417
  Serious: Yes (Death, Hospitalization)
  Sender: FDA-Public Use
  Company Number: 2023A075407

PATIENT
  Age: 74 Year
  Sex: Male

DRUGS (12)
  1. DAPAGLIFLOZIN [Interacting]
     Active Substance: DAPAGLIFLOZIN
     Indication: Diabetes mellitus
     Dosage: 5 MG START DATE: 2022 OR BEFORE.
     Route: 048
     Dates: start: 2022, end: 20230125
  2. JANUMET [Interacting]
     Active Substance: METFORMIN HYDROCHLORIDE\SITAGLIPTIN PHOSPHATE
     Indication: Diabetes mellitus
     Dosage: START DATE: 2012 OR EVEN BEFORE
     Route: 048
     Dates: start: 2012, end: 20230125
  3. GEMFIBROZIL [Interacting]
     Active Substance: GEMFIBROZIL
     Indication: Weight decreased
     Route: 048
     Dates: start: 20221115, end: 20230125
  4. ATORVASTATIN CALCIUM\EZETIMIBE [Interacting]
     Active Substance: ATORVASTATIN CALCIUM\EZETIMIBE
     Indication: Dyslipidaemia
     Dosage: START DATE: 2012 OR EVEN BEFORE
     Route: 048
     Dates: start: 2012, end: 20230125
  5. ENALAPRIL [Interacting]
     Active Substance: ENALAPRIL
     Indication: Hypertension
     Dosage: START DATE: 2012 OR EVEN BEFORE
     Route: 048
     Dates: start: 2012, end: 20230125
  6. GLIMEPIRIDE [Concomitant]
     Active Substance: GLIMEPIRIDE
     Indication: Diabetes mellitus
     Dosage: START DATE: 2012 OR EVEN BEFORE
     Route: 048
     Dates: start: 2012, end: 20230125
  7. ASPIRIN [Concomitant]
     Active Substance: ASPIRIN
     Indication: Coronary artery disease
     Dosage: START DATE: 2012 OR EVEN BEFORE
     Dates: start: 2012
  8. PRASUGREL HYDROCHLORIDE [Concomitant]
     Active Substance: PRASUGREL HYDROCHLORIDE
     Indication: Coronary artery disease
     Dosage: END DATE: UNKNOWN (DURANT HOSPITALIZATION, PROBABLY FEBRUARY 2023)
     Route: 048
     Dates: start: 20220526, end: 202302
  9. BISOPROLOL [Concomitant]
     Active Substance: BISOPROLOL
     Indication: Coronary artery disease
     Dosage: START DATE: 2012 OR EVEN BEFORE
     Route: 048
     Dates: start: 2012, end: 20230126
  10. ALDACTONE [Concomitant]
     Active Substance: SPIRONOLACTONE
     Indication: Cardiovascular disorder
     Dosage: START DATE: 2012 OR EVEN BEFORE
     Dates: start: 2012, end: 20230125
  11. NITRODERM [Concomitant]
     Active Substance: NITROGLYCERIN
     Indication: Coronary artery disease
     Dosage: START DATE: 2012 OR EVEN BEFORE
     Route: 062
     Dates: start: 2012
  12. TAMSULOSIN HYDROCHLORIDE [Concomitant]
     Active Substance: TAMSULOSIN HYDROCHLORIDE
     Indication: Prostatic adenoma
     Dosage: START DATE: 2012 OR EVEN BEFORE
     Route: 048
     Dates: start: 2012

REACTIONS (2)
  - Pancreatitis necrotising [Fatal]
  - Drug interaction [Not Recovered/Not Resolved]

NARRATIVE: CASE EVENT DATE: 20230125
